FAERS Safety Report 8027100-1 (Version None)
Quarter: 2012Q1

REPORT INFORMATION
  Report Type: 
  Country: None (occurrence: None)
  Receive Date: 20120106
  Receipt Date: 20120105
  Transmission Date: 20120608
  Serious: Yes (Death, Hospitalization)
  Sender: FDA-Public Use
  Company Number: PHFR2011GB05064

PATIENT
  Sex: Male

DRUGS (4)
  1. HYOSCINE [Concomitant]
     Dosage: 300 UG, UNK
     Route: 048
  2. CLOZARIL [Suspect]
     Indication: SCHIZOPHRENIA, PARANOID TYPE
     Dosage: 375 MG, UNK
     Route: 048
     Dates: start: 19981223
  3. CLONIDINE [Concomitant]
     Dosage: 200 UG, UNK
     Route: 048
  4. SIMVASTATIN [Concomitant]
     Dosage: 20 MG, UNK
     Route: 048

REACTIONS (3)
  - CHRONIC OBSTRUCTIVE PULMONARY DISEASE [None]
  - INTESTINAL OBSTRUCTION [None]
  - DYSPNOEA [None]
